FAERS Safety Report 19447726 (Version 1)
Quarter: 2021Q2

REPORT INFORMATION
  Report Type: Spontaneous
  Country: US (occurrence: US)
  Receive Date: 20210622
  Receipt Date: 20210622
  Transmission Date: 20210717
  Serious: No
  Sender: FDA-Public Use
  Company Number: US-JNJFOC-20210642059

PATIENT
  Age: 51 Year
  Sex: Male
  Weight: 122.58 kg

DRUGS (1)
  1. XARELTO [Suspect]
     Active Substance: RIVAROXABAN
     Indication: FACTOR V DEFICIENCY
     Route: 048

REACTIONS (4)
  - Product use in unapproved indication [Unknown]
  - Feeling abnormal [Unknown]
  - Limb injury [Unknown]
  - Off label use [Unknown]
